FAERS Safety Report 5594674-X (Version None)
Quarter: 2007Q4

REPORT INFORMATION
  Report Type: 
  Country: None (occurrence: None)
  Receive Date: 20071218
  Receipt Date: 20070227
  Transmission Date: 20080405
  Serious: Yes (Other)
  Sender: FDA-Public Use
  Company Number: PHO-2006-008 F-UP#1

PATIENT
  Age: 85 Year
  Sex: Male
  Weight: 87 kg

DRUGS (6)
  1. PHOTOFRIN [Suspect]
     Indication: BLADDER CANCER
     Dosage: 130MG; 1 DOSE; IV
     Route: 042
     Dates: start: 20050831
  2. LISINOPRIL AND HYDROCHLOROTHIAZIDE [Concomitant]
  3. PREVACID [Concomitant]
  4. PLAVIX [Concomitant]
  5. DETROL LA [Concomitant]
  6. ASPIRIN [Concomitant]

REACTIONS (2)
  - LEUKAEMIA [None]
  - PHLEBITIS [None]
